FAERS Safety Report 24259855 (Version 1)
Quarter: 2024Q3

REPORT INFORMATION
  Report Type: Spontaneous
  Country: US (occurrence: US)
  Receive Date: 20240828
  Receipt Date: 20240828
  Transmission Date: 20241016
  Serious: Yes (Other)
  Sender: BIOMARIN
  Company Number: US-SA-2024SA249996

PATIENT

DRUGS (2)
  1. LARONIDASE [Suspect]
     Active Substance: LARONIDASE
     Indication: Mucopolysaccharidosis I
     Dosage: OVER A THREE-HOUR PERIOD AT A DOSE OF 125,000 U PER KILOGRAM; THE RATE WAS 3000 U PER KILOGRAM DURIN
     Route: 042
  2. DIPHENHYDRAMINE [Concomitant]
     Active Substance: DIPHENHYDRAMINE
     Indication: Premedication
     Dosage: 0.5 TO 1.25 MG PER KILOGRAM OF BODY WEIGHT

REACTIONS (5)
  - Angioedema [Unknown]
  - Tongue disorder [Unknown]
  - Throat tightness [Unknown]
  - Hypoxia [Unknown]
  - Urticaria [Recovered/Resolved]
